FAERS Safety Report 11031028 (Version 2)
Quarter: 2015Q3

REPORT INFORMATION
  Report Type: Spontaneous
  Country: US (occurrence: US)
  Receive Date: 20150415
  Receipt Date: 20150821
  Transmission Date: 20151125
  Serious: Yes (Hospitalization)
  Sender: FDA-Public Use
  Company Number: US-BAYER-2015-135276

PATIENT
  Age: 25 Year
  Sex: Female
  Weight: 74.83 kg

DRUGS (4)
  1. ZYRTEC [Concomitant]
     Active Substance: CETIRIZINE HYDROCHLORIDE
     Route: 048
  2. MIRENA [Suspect]
     Active Substance: LEVONORGESTREL
     Indication: CONTRACEPTION
     Dosage: 20 MCG/24HR, CONT
     Route: 015
     Dates: start: 20080111, end: 20090605
  3. HYDROCODONE [Concomitant]
     Active Substance: HYDROCODONE
  4. MIRENA [Suspect]
     Active Substance: LEVONORGESTREL
     Indication: CONTRACEPTION
     Dosage: 20 MCG/24HR, CONT
     Route: 015
     Dates: start: 201004, end: 201012

REACTIONS (12)
  - Injury [None]
  - Emotional distress [None]
  - Activities of daily living impaired [None]
  - Abdominal pain lower [None]
  - Depression [None]
  - Anxiety [None]
  - Uterine perforation [None]
  - Arthralgia [None]
  - Psychological trauma [None]
  - Post-traumatic stress disorder [None]
  - Fear of death [None]
  - Device dislocation [None]

NARRATIVE: CASE EVENT DATE: 20090605
